FAERS Safety Report 17005802 (Version 1)
Quarter: 2019Q4

REPORT INFORMATION
  Report Type: Report from Study
  Country: IT (occurrence: IT)
  Receive Date: 20191107
  Receipt Date: 20191107
  Transmission Date: 20200122
  Serious: Yes (Other)
  Sender: FDA-Public Use
  Company Number: IT-GILEAD-2019-0436557

PATIENT
  Age: 51 Year
  Sex: Male

DRUGS (3)
  1. EPIVIR [Concomitant]
     Active Substance: LAMIVUDINE
  2. TENOFOVIR DISOPROXIL FUMARATE. [Suspect]
     Active Substance: TENOFOVIR DISOPROXIL FUMARATE
     Indication: HIV INFECTION
     Dosage: UNK
     Route: 065
  3. SUSTIVA [Concomitant]
     Active Substance: EFAVIRENZ

REACTIONS (1)
  - Osteoporosis [Unknown]
